FAERS Safety Report 19781960 (Version 2)
Quarter: 2022Q3

REPORT INFORMATION
  Report Type: Spontaneous
  Country: US (occurrence: US)
  Receive Date: 20210902
  Receipt Date: 20220902
  Transmission Date: 20221027
  Serious: No
  Sender: FDA-Public Use
  Company Number: ENDG21-03633

PATIENT
  Sex: Male

DRUGS (4)
  1. PREDNISONE [Suspect]
     Active Substance: PREDNISONE
     Indication: Deafness
     Dosage: HIGH DOSE FOR 7 DAYS, UNKNOWN
     Route: 065
     Dates: start: 2021
  2. PREDNISONE [Suspect]
     Active Substance: PREDNISONE
     Indication: Tinnitus
     Dosage: UNK UNKNOWN, UNKNOWN (60-DAY HIGH-DOSE, DOWN TO HIS LAST 5 MG PILLS, TAPER)
     Route: 065
     Dates: start: 202108
  3. PREDNISONE [Suspect]
     Active Substance: PREDNISONE
     Indication: Inflammation
  4. LOSARTAN [Concomitant]
     Active Substance: LOSARTAN
     Indication: Product used for unknown indication

REACTIONS (5)
  - Insomnia [Unknown]
  - Ill-defined disorder [Unknown]
  - Drug ineffective for unapproved indication [Unknown]
  - Drug ineffective [Unknown]
  - Off label use [Unknown]

NARRATIVE: CASE EVENT DATE: 20210101
